FAERS Safety Report 17665016 (Version 1)
Quarter: 2020Q2

REPORT INFORMATION
  Report Type: Spontaneous
  Country: US (occurrence: US)
  Receive Date: 20200414
  Receipt Date: 20200414
  Transmission Date: 20200713
  Serious: No
  Sender: FDA-Public Use
  Company Number: US-PFIZER INC-2020152103

PATIENT
  Age: 51 Year
  Sex: Female
  Weight: 89.81 kg

DRUGS (2)
  1. CENTRUM [Suspect]
     Active Substance: VITAMINS
     Indication: VITAMIN SUPPLEMENTATION
     Dosage: 1 DF, 1X/DAY (ONE TABLET A DAY IN THE MORNING)
     Dates: end: 202004
  2. PANTOPRAZOLE [Suspect]
     Active Substance: PANTOPRAZOLE
     Indication: GASTRIC DISORDER
     Dosage: ^400 MG,^ 1X/DAY (400MG TABLET ONCE A DAY)
     Dates: end: 202004

REACTIONS (3)
  - Anxiety [Unknown]
  - Dysgeusia [Unknown]
  - Dry mouth [Unknown]

NARRATIVE: CASE EVENT DATE: 2020
